FAERS Safety Report 9147967 (Version 2)
Quarter: 2013Q1

REPORT INFORMATION
  Report Type: Spontaneous
  Country: US (occurrence: US)
  Receive Date: 20130301
  Receipt Date: 20130327
  Transmission Date: 20140127
  Serious: Yes (Death, Other)
  Sender: FDA-Public Use
  Company Number: US-RB-050500-13

PATIENT
  Age: 42 Year
  Sex: Female

DRUGS (2)
  1. SUBOXONE TABLET [Suspect]
     Indication: PRODUCT USED FOR UNKNOWN INDICATION
     Dosage: DOSAGE DETAILS UNKNOWN
     Route: 065
  2. ANTI-DEPRESSANTS [Concomitant]
     Indication: DEPRESSION
     Dosage: DOSAGE DETAILS UNKNOWN
     Route: 065

REACTIONS (3)
  - Neoplasm malignant [Unknown]
  - Loss of consciousness [Fatal]
  - Toxicity to various agents [Fatal]
